FAERS Safety Report 19015441 (Version 2)
Quarter: 2021Q1

REPORT INFORMATION
  Report Type: Report from Study
  Country: None (occurrence: US)
  Receive Date: 20210317
  Receipt Date: 20210318
  Transmission Date: 20210420
  Serious: Yes (Hospitalization)
  Sender: FDA-Public Use
  Company Number: US-ABBVIE-21K-163-3793347-00

PATIENT
  Age: 77 Year
  Sex: Male

DRUGS (1)
  1. IMBRUVICA [Suspect]
     Active Substance: IBRUTINIB
     Indication: WALDENSTROM^S MACROGLOBULINAEMIA
     Route: 048
     Dates: start: 202102, end: 202103

REACTIONS (5)
  - Cardiac failure congestive [Unknown]
  - Head injury [Unknown]
  - Loss of personal independence in daily activities [Unknown]
  - Transient ischaemic attack [Unknown]
  - Fall [Unknown]

NARRATIVE: CASE EVENT DATE: 202102
